FAERS Safety Report 8435454-7 (Version None)
Quarter: 2012Q2

REPORT INFORMATION
  Report Type: 
  Country: None (occurrence: None)
  Receive Date: 20120614
  Receipt Date: 20120604
  Transmission Date: 20120825
  Serious: Yes (Other)
  Sender: FDA-Public Use
  Company Number: US-CELGENEUS-163-21660-12060477

PATIENT
  Age: 60 Year
  Sex: Male

DRUGS (3)
  1. ABRAXANE [Suspect]
     Route: 065
  2. GEMCITABINE [Suspect]
     Route: 065
  3. HYDROXYCHLOROQUINE SULFATE [Suspect]
     Route: 065

REACTIONS (2)
  - MICTURITION DISORDER [None]
  - TREMOR [None]
